FAERS Safety Report 11194765 (Version 5)
Quarter: 2015Q3

REPORT INFORMATION
  Report Type: Report from Study
  Country: US (occurrence: US)
  Receive Date: 20150617
  Receipt Date: 20150819
  Transmission Date: 20151125
  Serious: Yes (Death, Life-Threatening, Hospitalization, Other)
  Sender: FDA-Public Use
  Company Number: US-ALEXION PHARMACEUTICALS INC-A201502101

PATIENT

DRUGS (1)
  1. SOLIRIS [Suspect]
     Active Substance: ECULIZUMAB
     Indication: HAEMOLYTIC URAEMIC SYNDROME
     Dosage: UNK
     Route: 042
     Dates: end: 20150605

REACTIONS (6)
  - Cardiac arrest [Unknown]
  - Haemoglobin decreased [Unknown]
  - Unresponsive to stimuli [Unknown]
  - Laboratory test abnormal [Unknown]
  - Death [Fatal]
  - Internal haemorrhage [Unknown]

NARRATIVE: CASE EVENT DATE: 20150512
